FAERS Safety Report 23940396 (Version 1)
Quarter: 2024Q2

REPORT INFORMATION
  Report Type: Report from Study
  Country: GB (occurrence: GB)
  Receive Date: 20240605
  Receipt Date: 20240605
  Transmission Date: 20240716
  Serious: Yes (Other)
  Sender: FDA-Public Use
  Company Number: GB-ABBVIE-5782607

PATIENT
  Sex: Male

DRUGS (1)
  1. HUMIRA [Suspect]
     Active Substance: ADALIMUMAB
     Indication: Ankylosing spondylitis
     Dosage: FORM STRENGTH UNITS: 40 MILLIGRAM, MISSED DOSES
     Route: 058

REACTIONS (8)
  - Blindness transient [Unknown]
  - Unevaluable event [Unknown]
  - Rectal haemorrhage [Unknown]
  - Erythema [Unknown]
  - Gastrointestinal disorder [Unknown]
  - Eye infection [Unknown]
  - Vomiting [Unknown]
  - Eye disorder [Unknown]
